FAERS Safety Report 8963016 (Version 1)
Quarter: 2012Q4

REPORT INFORMATION
  Report Type: 
  Country: US (occurrence: US)
  Receive Date: 20121214
  Receipt Date: 20121214
  Transmission Date: 20130627
  Serious: No
  Sender: FDA-Public Use
  Company Number: US-B.I. PHARMACEUTICALS,INC./RIDGEFIELD-2012-BI-02212BP

PATIENT
  Sex: Female

DRUGS (2)
  1. MELOXICAM [Suspect]
  2. CELEBREX [Suspect]

REACTIONS (1)
  - Gastritis erosive [Unknown]
